FAERS Safety Report 19373090 (Version 2)
Quarter: 2022Q1

REPORT INFORMATION
  Report Type: Spontaneous
  Country: JP (occurrence: JP)
  Receive Date: 20210604
  Receipt Date: 20220203
  Transmission Date: 20220423
  Serious: Yes (Life-Threatening, Hospitalization, Other)
  Sender: FDA-Public Use
  Company Number: JP-MLMSERVICE-20210512-2881240-1

PATIENT
  Age: 92 Year
  Sex: Female
  Weight: 33.2 kg

DRUGS (3)
  1. GLIMEPIRIDE [Suspect]
     Active Substance: GLIMEPIRIDE
     Indication: Diabetes mellitus
     Dosage: ONCE-DAILY
     Route: 048
  2. HERBALS\SENNOSIDES [Concomitant]
     Active Substance: HERBALS\SENNOSIDES
     Indication: Constipation
     Route: 048
  3. VALSARTAN [Concomitant]
     Active Substance: VALSARTAN
     Indication: Essential hypertension
     Route: 048

REACTIONS (2)
  - Hypoglycaemic coma [Recovered/Resolved]
  - Drug level increased [Recovered/Resolved]
